FAERS Safety Report 6141515-8 (Version None)
Quarter: 2009Q2

REPORT INFORMATION
  Report Type: 
  Country: None (occurrence: None)
  Receive Date: 20090401
  Receipt Date: 20090401
  Transmission Date: 20091009
  Serious: Yes (Other)
  Sender: FDA-Public Use
  Company Number: None

PATIENT
  Age: 52 Year
  Sex: Female
  Weight: 79.3795 kg

DRUGS (1)
  1. METOPROLOL SUCCINATE [Suspect]
     Indication: SYNCOPE
     Dosage: 25 MG ONCE A DAY PO
     Route: 048
     Dates: start: 20090215, end: 20090331

REACTIONS (6)
  - DIZZINESS [None]
  - FACE INJURY [None]
  - INCORRECT DOSE ADMINISTERED [None]
  - LOSS OF CONSCIOUSNESS [None]
  - PERIORBITAL HAEMATOMA [None]
  - SKIN LACERATION [None]
